FAERS Safety Report 8953431 (Version 1)
Quarter: 2012Q4

REPORT INFORMATION
  Report Type: 
  Country: US (occurrence: US)
  Receive Date: 20121206
  Receipt Date: 20121206
  Transmission Date: 20130627
  Serious: Yes (Hospitalization)
  Sender: FDA-Public Use
  Company Number: US-GLAXOSMITHKLINE-A0818006A

PATIENT
  Age: 50 Year
  Sex: Female

DRUGS (3)
  1. AVANDIA [Suspect]
     Indication: DIABETES MELLITUS
     Dosage: 4MG Per day
     Route: 048
  2. AVANDAMET [Suspect]
     Indication: DIABETES MELLITUS
     Route: 048
  3. AVANDARYL [Suspect]
     Indication: DIABETES MELLITUS
     Route: 048

REACTIONS (1)
  - Cerebrovascular accident [Not Recovered/Not Resolved]
